FAERS Safety Report 24357295 (Version 1)
Quarter: 2024Q3

REPORT INFORMATION
  Report Type: Spontaneous
  Country: CH (occurrence: CH)
  Receive Date: 20240924
  Receipt Date: 20240924
  Transmission Date: 20241016
  Serious: Yes (Hospitalization, Other)
  Sender: JOHNSON AND JOHNSON
  Company Number: CH-JNJFOC-A-CH2009-28304

PATIENT
  Age: 29 Year
  Sex: Female

DRUGS (8)
  1. TRACLEER [Suspect]
     Active Substance: BOSENTAN
     Indication: Pulmonary arterial hypertension
     Dosage: 125 MG, BID
     Route: 048
  2. TRACLEER [Suspect]
     Active Substance: BOSENTAN
     Dosage: 125 MG, BID
     Route: 048
  3. SILDENAFIL [Concomitant]
     Active Substance: SILDENAFIL
  4. PREDNISONE [Concomitant]
     Active Substance: PREDNISONE
  5. HYDROXYCHLOROQUINE [Concomitant]
     Active Substance: HYDROXYCHLOROQUINE
  6. AZATHIOPRINE [Concomitant]
     Active Substance: AZATHIOPRINE
  7. PHENPROCOUMON [Concomitant]
     Active Substance: PHENPROCOUMON
  8. HEPARIN [Concomitant]
     Active Substance: HEPARIN SODIUM

REACTIONS (12)
  - Pregnancy [Unknown]
  - Systemic lupus erythematosus [Unknown]
  - Disease progression [Unknown]
  - Caesarean section [Unknown]
  - Dyspnoea [Unknown]
  - Fatigue [Unknown]
  - Joint swelling [Unknown]
  - Butterfly rash [Unknown]
  - Pericardial effusion [Unknown]
  - Pleural effusion [Unknown]
  - Pulmonary arterial pressure increased [Unknown]
  - Live birth [Unknown]
